FAERS Safety Report 8444385-8 (Version None)
Quarter: 2012Q2

REPORT INFORMATION
  Report Type: 
  Country: None (occurrence: None)
  Receive Date: 20120618
  Receipt Date: 20120614
  Transmission Date: 20120825
  Serious: Yes (Other)
  Sender: FDA-Public Use
  Company Number: US-PFIZER INC-2012144755

PATIENT
  Sex: Male
  Weight: 92.971 kg

DRUGS (9)
  1. VITAMIN D [Concomitant]
     Dosage: UNK,2X/DAY
  2. ASCORBIC ACID [Concomitant]
     Dosage: UNK
  3. ZINC [Concomitant]
     Dosage: UNK
  4. METFORMIN [Concomitant]
     Indication: DIABETES MELLITUS
     Dosage: 1000 MG, 2X/DAY
  5. LIPITOR [Suspect]
     Indication: BLOOD CHOLESTEROL INCREASED
     Dosage: UNK
  6. LISINOPRIL [Concomitant]
     Indication: RENAL DISORDER
  7. LISINOPRIL [Concomitant]
     Indication: MICTURITION DISORDER
     Dosage: UNK,DAILY
  8. ACETYLSALICYLIC ACID [Concomitant]
     Indication: ANTICOAGULANT THERAPY
     Dosage: 325 MG, DAILY
  9. NORVASC [Suspect]
     Indication: HYPERTENSION
     Dosage: UNK
     Dates: end: 20120601

REACTIONS (2)
  - ROAD TRAFFIC ACCIDENT [None]
  - BACK INJURY [None]
